FAERS Safety Report 10901192 (Version 1)
Quarter: 2015Q1

REPORT INFORMATION
  Report Type: Spontaneous
  Country: KR (occurrence: KR)
  Receive Date: 20150310
  Receipt Date: 20150310
  Transmission Date: 20150721
  Serious: Yes (Other)
  Sender: FDA-Public Use
  Company Number: KR-MYLANLABS-2015M1007339

PATIENT

DRUGS (6)
  1. CAPECITABINE. [Concomitant]
     Active Substance: CAPECITABINE
     Indication: METASTATIC GASTRIC CANCER
     Dosage: 11 CYCLES
     Route: 065
     Dates: start: 20080829, end: 20090611
  2. FLUOROURACIL. [Suspect]
     Active Substance: FLUOROURACIL
     Indication: METASTATIC GASTRIC CANCER
     Dosage: 4 CYCLES
     Route: 050
     Dates: start: 20090709
  3. BEVACIZUMAB [Suspect]
     Active Substance: BEVACIZUMAB
     Indication: METASTATIC GASTRIC CANCER
     Dosage: 11 CYCLES
     Route: 065
     Dates: start: 20080829, end: 20090611
  4. PACLITAXEL. [Suspect]
     Active Substance: PACLITAXEL
     Indication: METASTATIC GASTRIC CANCER
     Dosage: 4 CYCLES
     Route: 065
     Dates: start: 20090709
  5. CISPLATIN. [Concomitant]
     Active Substance: CISPLATIN
     Indication: METASTATIC GASTRIC CANCER
     Dosage: 11 CYCLES
     Route: 065
     Dates: start: 20080829, end: 20090611
  6. FOLINIC ACID [Suspect]
     Active Substance: LEUCOVORIN
     Indication: METASTATIC GASTRIC CANCER
     Dosage: 4 CYCLES
     Route: 065
     Dates: start: 20090709

REACTIONS (3)
  - Oral candidiasis [Recovering/Resolving]
  - Bone loss [Not Recovered/Not Resolved]
  - Periodontitis [Not Recovered/Not Resolved]

NARRATIVE: CASE EVENT DATE: 20090902
